FAERS Safety Report 24087619 (Version 1)
Quarter: 2024Q3

REPORT INFORMATION
  Report Type: Spontaneous
  Country: DE (occurrence: DE)
  Receive Date: 20240714
  Receipt Date: 20240714
  Transmission Date: 20241016
  Serious: Yes (Hospitalization, Other)
  Sender: SANDOZ
  Company Number: None

PATIENT
  Age: 5 Year
  Sex: Male

DRUGS (22)
  1. BESPONSA [Suspect]
     Active Substance: INOTUZUMAB OZOGAMICIN
     Indication: B-cell prolymphocytic leukaemia
     Dosage: 0.41 MG, 1X
     Route: 042
     Dates: start: 20231107, end: 20231123
  2. CYCLOPHOSPHAMIDE [Suspect]
     Active Substance: CYCLOPHOSPHAMIDE
     Indication: Product used for unknown indication
     Dosage: 162 MG, 5 DOSES ON DAY 2, DAY 4 OF PROTOCOL
     Route: 065
     Dates: start: 20231207
  3. CYCLOPHOSPHAMIDE [Suspect]
     Active Substance: CYCLOPHOSPHAMIDE
     Dosage: 162 MG, 5 DOSES ON DAY 2, DAY 4 OF PROTOCOL
     Route: 065
     Dates: start: 20231207
  4. CYTARABINE [Suspect]
     Active Substance: CYTARABINE
     Indication: Product used for unknown indication
     Dosage: 1620 MG, BID
     Route: 065
     Dates: start: 20231210
  5. CYTARABINE [Suspect]
     Active Substance: CYTARABINE
     Dosage: 1620 MG, BID
     Route: 065
     Dates: start: 20231210
  6. CYTARABINE [Suspect]
     Active Substance: CYTARABINE
     Dosage: 30 MG, 1X
     Route: 065
     Dates: start: 20231205, end: 20231205
  7. CYTARABINE [Suspect]
     Active Substance: CYTARABINE
     Dosage: 30 MG, 1X
     Route: 065
     Dates: start: 20231205, end: 20231205
  8. DEXAMETHASONE ACETATE [Suspect]
     Active Substance: DEXAMETHASONE ACETATE
     Indication: B-cell prolymphocytic leukaemia
     Dosage: 2 MG, BID
     Route: 065
     Dates: start: 20231205
  9. METHOTREXATE [Suspect]
     Active Substance: METHOTREXATE
     Indication: Product used for unknown indication
     Dosage: 12 MG, 1X
     Route: 065
     Dates: start: 20231205, end: 20231205
  10. METHOTREXATE [Suspect]
     Active Substance: METHOTREXATE
     Dosage: 12 MG, 1X
     Route: 065
     Dates: start: 20231205, end: 20231205
  11. METHOTREXATE [Suspect]
     Active Substance: METHOTREXATE
     Dosage: 810 MG INFUSION OVER 36 HOURS
     Route: 065
     Dates: start: 20231206
  12. METHOTREXATE [Suspect]
     Active Substance: METHOTREXATE
     Dosage: 810 MG INFUSION OVER 36 HOURS
     Route: 065
     Dates: start: 20231206
  13. PREDNISOLONE [Suspect]
     Active Substance: PREDNISOLONE
     Indication: Product used for unknown indication
     Dosage: 10 MG, 1X
     Route: 065
     Dates: start: 20231205, end: 20231205
  14. PREDNISOLONE [Suspect]
     Active Substance: PREDNISOLONE
     Dosage: 10 MG, 1X
     Route: 065
     Dates: start: 20231205, end: 20231205
  15. PEGASPARGASE [Suspect]
     Active Substance: PEGASPARGASE
     Indication: B-cell prolymphocytic leukaemia
     Dosage: 810 IU, 1X
     Route: 065
     Dates: start: 20231211, end: 20231211
  16. VINCRISTINE SULFATE [Suspect]
     Active Substance: VINCRISTINE SULFATE
     Indication: Product used for unknown indication
     Dosage: 1.22 ON DAY 1 AND DAY 6
     Route: 065
     Dates: start: 20231206
  17. VINCRISTINE SULFATE [Suspect]
     Active Substance: VINCRISTINE SULFATE
     Dosage: 1.22 ON DAY 1 AND DAY 6
     Route: 065
     Dates: start: 20231206
  18. AMBISOME [Concomitant]
     Active Substance: AMPHOTERICIN B
     Indication: Immunosuppression
     Route: 065
     Dates: start: 20231102
  19. COTRIMOXAZOLE [Concomitant]
     Active Substance: SULFAMETHOXAZOLE\TRIMETHOPRIM
     Indication: Product used for unknown indication
     Dosage: UNK
     Route: 065
  20. COTRIMOXAZOLE [Concomitant]
     Active Substance: SULFAMETHOXAZOLE\TRIMETHOPRIM
     Route: 065
  21. METHOTREXATE SODIUM [Concomitant]
     Active Substance: METHOTREXATE SODIUM
     Indication: Product used for unknown indication
     Route: 065
  22. Novalgin [Concomitant]
     Indication: Product used for unknown indication
     Route: 048
     Dates: start: 20231208

REACTIONS (3)
  - Mucosal inflammation [Recovered/Resolved]
  - Pyrexia [Recovered/Resolved]
  - Myelosuppression [Recovered/Resolved]

NARRATIVE: CASE EVENT DATE: 20231214
